FAERS Safety Report 24759845 (Version 1)
Quarter: 2024Q4

REPORT INFORMATION
  Report Type: Report from Study
  Country: US (occurrence: US)
  Receive Date: 20241220
  Receipt Date: 20241220
  Transmission Date: 20250114
  Serious: Yes (Death, Other)
  Sender: GILEAD
  Company Number: US-GILEAD-2024-0697654

PATIENT
  Sex: Female

DRUGS (1)
  1. AZTREONAM LYSINE [Suspect]
     Active Substance: AZTREONAM LYSINE
     Indication: Bronchiectasis
     Dosage: 75 MG, TID (FOR 28 DAYS ON FOLLOWED BY 28 DAYS OFF )
     Route: 055
     Dates: start: 20240206

REACTIONS (2)
  - Death [Fatal]
  - Product use in unapproved indication [Unknown]
